FAERS Safety Report 19469448 (Version 2)
Quarter: 2021Q3

REPORT INFORMATION
  Report Type: Other
  Country: US (occurrence: US)
  Receive Date: 20210629
  Receipt Date: 20210722
  Transmission Date: 20211014
  Serious: Yes (Life-Threatening, Hospitalization, Other)
  Sender: FDA-Public Use
  Company Number: US-INNOGENIX, LLC-2113236

PATIENT
  Sex: Male

DRUGS (8)
  1. BACLOFEN. [Suspect]
     Active Substance: BACLOFEN
     Indication: PRODUCT USED FOR UNKNOWN INDICATION
     Route: 065
  2. CLONAZEPAM. [Interacting]
     Active Substance: CLONAZEPAM
     Route: 065
  3. LITHIUM. [Interacting]
     Active Substance: LITHIUM
     Route: 065
  4. CARBAMAZEPINE. [Interacting]
     Active Substance: CARBAMAZEPINE
     Route: 065
  5. ATORVASTATIN [Interacting]
     Active Substance: ATORVASTATIN
     Route: 065
  6. CARVEDILOL. [Interacting]
     Active Substance: CARVEDILOL
     Route: 065
  7. LEVETIRACETAM. [Interacting]
     Active Substance: LEVETIRACETAM
     Route: 065
  8. MIRTAZAPINE. [Interacting]
     Active Substance: MIRTAZAPINE
     Route: 065

REACTIONS (3)
  - Cardiotoxicity [Recovered/Resolved]
  - Drug interaction [Recovered/Resolved]
  - Diarrhoea [Recovered/Resolved]
